FAERS Safety Report 7960599-5 (Version None)
Quarter: 2011Q4

REPORT INFORMATION
  Report Type: 
  Country: None (occurrence: None)
  Receive Date: 20111206
  Receipt Date: 20111130
  Transmission Date: 20120403
  Serious: Yes (Other)
  Sender: FDA-Public Use
  Company Number: SI-MERCK-1103USA03093

PATIENT
  Age: 75 Year
  Sex: Female

DRUGS (3)
  1. ZOCOR [Suspect]
     Route: 048
     Dates: start: 20090206, end: 20110317
  2. AGLURAB [Concomitant]
     Route: 065
  3. MONOPRIL [Concomitant]
     Route: 065

REACTIONS (3)
  - BLOOD CREATININE ABNORMAL [None]
  - MYALGIA [None]
  - MUSCULAR WEAKNESS [None]
